FAERS Safety Report 25196625 (Version 1)
Quarter: 2025Q2

REPORT INFORMATION
  Report Type: 
  Country: JP (occurrence: JP)
  Receive Date: 20250415
  Receipt Date: 20250415
  Transmission Date: 20250717
  Serious: Yes (Death, Life-Threatening, Other)
  Sender: CELLTRION
  Company Number: JP-JPNKAYAKU-2025JPNK048430

PATIENT

DRUGS (4)
  1. BEVACIZUMAB [Suspect]
     Active Substance: BEVACIZUMAB
     Indication: Colon cancer
     Route: 042
     Dates: start: 20221124, end: 20250116
  2. OXALIPLATIN [Concomitant]
     Active Substance: OXALIPLATIN
     Route: 042
     Dates: start: 20221124, end: 20250116
  3. CAPECITABINE [Concomitant]
     Active Substance: CAPECITABINE
     Route: 048
     Dates: start: 20221124, end: 20250116
  4. MAGNESIUM OXIDE [Concomitant]
     Active Substance: MAGNESIUM OXIDE
     Route: 048
     Dates: start: 20221017, end: 20250122

REACTIONS (4)
  - Cerebral haemorrhage [Fatal]
  - Hypertension [Unknown]
  - Acute kidney injury [Unknown]
  - Intentional product use issue [Unknown]

NARRATIVE: CASE EVENT DATE: 20250122
